FAERS Safety Report 4568440-8 (Version None)
Quarter: 2005Q1

REPORT INFORMATION
  Report Type: 
  Country: None (occurrence: None)
  Receive Date: 20050131
  Receipt Date: 20050117
  Transmission Date: 20050727
  Serious: Yes (Hospitalization)
  Sender: FDA-Public Use
  Company Number: 2005SE00224

PATIENT
  Age: 58 Year
  Sex: Female

DRUGS (2)
  1. CRESTOR [Suspect]
     Indication: HYPERCHOLESTEROLAEMIA
     Dosage: 10 MG QD PO
     Route: 048
     Dates: start: 20040401, end: 20040101
  2. COVERSYL [Concomitant]

REACTIONS (5)
  - ASCITES [None]
  - FEAR [None]
  - METASTASIS [None]
  - OVARIAN CANCER [None]
  - PROCEDURAL HYPOTENSION [None]
